FAERS Safety Report 5045874-9 (Version None)
Quarter: 2006Q2

REPORT INFORMATION
  Report Type: 
  Country: None (occurrence: None)
  Receive Date: 20060629
  Receipt Date: 20060621
  Transmission Date: 20061013
  Serious: Yes (Hospitalization, Other)
  Sender: FDA-Public Use
  Company Number: 2006069064

PATIENT
  Age: 70 Year
  Sex: Female
  Weight: 52.1637 kg

DRUGS (7)
  1. LIPITOR [Suspect]
     Indication: BLOOD CHOLESTEROL INCREASED
     Dosage: 10 MG (10 MG, 1 IN 1 D), ORAL, 6-7 YEARS AGO
     Route: 048
     Dates: end: 20060501
  2. VITAMINS (VITAMINS) [Concomitant]
  3. PREMARIN [Concomitant]
  4. ASPIRIN [Concomitant]
  5. MULTIVITAMIN [Concomitant]
  6. FISH OIL (FISH OIL) [Concomitant]
  7. CALCIUM (CALCIUM) [Concomitant]

REACTIONS (6)
  - ARTHRITIS [None]
  - ASTHENIA [None]
  - BLADDER PROLAPSE [None]
  - MYALGIA [None]
  - PAIN IN EXTREMITY [None]
  - SURGICAL PROCEDURE REPEATED [None]
